FAERS Safety Report 17140467 (Version 2)
Quarter: 2019Q4

REPORT INFORMATION
  Report Type: Spontaneous
  Country: DE (occurrence: DE)
  Receive Date: 20191211
  Receipt Date: 20191218
  Transmission Date: 20200122
  Serious: Yes (Other)
  Sender: FDA-Public Use
  Company Number: DE-BRISTOL-MYERS SQUIBB COMPANY-BMS-2019-117597

PATIENT
  Age: 86 Year
  Sex: Female
  Weight: 62 kg

DRUGS (1)
  1. ELIQUIS [Suspect]
     Active Substance: APIXABAN
     Indication: CEREBROVASCULAR ACCIDENT PROPHYLAXIS
     Dosage: 5 MILLIGRAM, BID
     Route: 065
     Dates: start: 20190704

REACTIONS (7)
  - Dementia [Unknown]
  - Pallor [Unknown]
  - Weight decreased [Unknown]
  - Anxiety [Unknown]
  - Sleep disorder [Unknown]
  - Delusion [Unknown]
  - Memory impairment [Unknown]
